FAERS Safety Report 17759900 (Version 7)
Quarter: 2021Q1

REPORT INFORMATION
  Report Type: Spontaneous
  Country: US (occurrence: US)
  Receive Date: 20200508
  Receipt Date: 20210219
  Transmission Date: 20210419
  Serious: No
  Sender: FDA-Public Use
  Company Number: US-IPSEN BIOPHARMACEUTICALS, INC.-2020-08174

PATIENT
  Age: 71 Year
  Sex: Male
  Weight: 79.37 kg

DRUGS (20)
  1. SOMATULINE DEPOT [Suspect]
     Active Substance: LANREOTIDE ACETATE
     Indication: NEUROENDOCRINE TUMOUR
     Dosage: 120 MG/0.5 ML SYRINGE UNDER THE SKIN
     Route: 058
     Dates: start: 201902
  2. SYMBICORT [Concomitant]
     Active Substance: BUDESONIDE\FORMOTEROL FUMARATE DIHYDRATE
  3. VITAMIN D2 [Concomitant]
     Active Substance: ERGOCALCIFEROL
  4. STIOLTO RESPIMAT [Concomitant]
     Active Substance: OLODATEROL HYDROCHLORIDE\TIOTROPIUM BROMIDE MONOHYDRATE
  5. SOMATULINE DEPOT [Suspect]
     Active Substance: LANREOTIDE ACETATE
     Indication: MALIGNANT NEOPLASM OF RENAL PELVIS
  6. SOMATULINE DEPOT [Suspect]
     Active Substance: LANREOTIDE ACETATE
     Indication: OFF LABEL USE
  7. VITAMIN B12 [Concomitant]
     Active Substance: CYANOCOBALAMIN
  8. AMLODIPINE BESYLATE. [Concomitant]
     Active Substance: AMLODIPINE BESYLATE
  9. TYVASO [Suspect]
     Active Substance: TREPROSTINIL
     Indication: PRODUCT USED FOR UNKNOWN INDICATION
     Route: 065
  10. AFINITOR [Concomitant]
     Active Substance: EVEROLIMUS
  11. MYRBETRIQ [Concomitant]
     Active Substance: MIRABEGRON
  12. UPTRAVI [Concomitant]
     Active Substance: SELEXIPAG
     Dates: end: 20200731
  13. VITAMIN B2 [Concomitant]
     Active Substance: RIBOFLAVIN
  14. OPSUMIT [Concomitant]
     Active Substance: MACITENTAN
     Dates: end: 20200731
  15. CARVEDILOL. [Concomitant]
     Active Substance: CARVEDILOL
  16. ELIQUIS [Concomitant]
     Active Substance: APIXABAN
  17. MINOXIDIL. [Concomitant]
     Active Substance: MINOXIDIL
  18. PROAIR HFA [Concomitant]
     Active Substance: ALBUTEROL SULFATE
  19. POTASSIUM CHLORIDE. [Concomitant]
     Active Substance: POTASSIUM CHLORIDE
  20. TRAMADOL. [Concomitant]
     Active Substance: TRAMADOL

REACTIONS (14)
  - Dyspnoea [Unknown]
  - Dizziness [Unknown]
  - Off label use [Unknown]
  - Fatigue [Unknown]
  - Agitation [Unknown]
  - Dizziness [Unknown]
  - Headache [Unknown]
  - Unevaluable event [Unknown]
  - Chest discomfort [Not Recovered/Not Resolved]
  - Pain [Unknown]
  - Pain in extremity [Not Recovered/Not Resolved]
  - Hypotension [Unknown]
  - Epigastric discomfort [Unknown]
  - Cough [Unknown]

NARRATIVE: CASE EVENT DATE: 2020
